FAERS Safety Report 20169173 (Version 1)
Quarter: 2021Q4

REPORT INFORMATION
  Report Type: Spontaneous
  Country: US (occurrence: US)
  Receive Date: 20211210
  Receipt Date: 20211210
  Transmission Date: 20220303
  Serious: No
  Sender: FDA-Public Use
  Company Number: US-SA-SAC20211206000257

PATIENT
  Age: 14 Year
  Sex: Female

DRUGS (7)
  1. DUPIXENT [Suspect]
     Active Substance: DUPILUMAB
     Indication: Dermatitis atopic
     Dosage: 300 MG, QOW
     Route: 058
     Dates: start: 20210529
  2. FLOVENT [Concomitant]
     Active Substance: FLUTICASONE PROPIONATE
  3. LORATADINE [Concomitant]
     Active Substance: LORATADINE
  4. MONTELUKAST [Concomitant]
     Active Substance: MONTELUKAST SODIUM
  5. PROAIR HFA [Concomitant]
     Active Substance: ALBUTEROL SULFATE
  6. PROTOPIC [Concomitant]
     Active Substance: TACROLIMUS
  7. FLUOCINONIDE [Concomitant]
     Active Substance: FLUOCINONIDE

REACTIONS (2)
  - Dermatitis atopic [Not Recovered/Not Resolved]
  - Product dose omission issue [Not Recovered/Not Resolved]
